FAERS Safety Report 8348040-4 (Version None)
Quarter: 2012Q2

REPORT INFORMATION
  Report Type: 
  Country: None (occurrence: None)
  Receive Date: 20120509
  Receipt Date: 20120507
  Transmission Date: 20120825
  Serious: No
  Sender: FDA-Public Use
  Company Number: US-PFIZER INC-2012111990

PATIENT
  Sex: Female
  Weight: 61.224 kg

DRUGS (3)
  1. COMPAZINE [Suspect]
     Indication: NAUSEA
     Dosage: 5 MG, EVERY 8 HOURS
     Dates: start: 20120401, end: 20120101
  2. CHANTIX [Suspect]
     Indication: SMOKING CESSATION THERAPY
     Dosage: 0.5 MG, DAILY
     Dates: start: 20120401
  3. SEROQUEL [Concomitant]
     Indication: SLEEP APNOEA SYNDROME
     Dosage: 200 MG, DAILY AT NIGHT

REACTIONS (3)
  - DRUG INEFFECTIVE [None]
  - NAUSEA [None]
  - INSOMNIA [None]
